FAERS Safety Report 7136141-8 (Version None)
Quarter: 2010Q4

REPORT INFORMATION
  Report Type: 
  Country: None (occurrence: None)
  Receive Date: 20101205
  Receipt Date: 20101111
  Transmission Date: 20110411
  Serious: Yes (Other)
  Sender: FDA-Public Use
  Company Number: BR-AMGEN-BRASP2010005220

PATIENT

DRUGS (1)
  1. ENBREL [Suspect]
     Indication: RHEUMATOID ARTHRITIS
     Dosage: 25 MG, 2X/WEEK
     Route: 058
     Dates: start: 20100401, end: 20100601

REACTIONS (7)
  - COUGH [None]
  - HEADACHE [None]
  - INFLUENZA [None]
  - MIGRAINE [None]
  - OROPHARYNGEAL PAIN [None]
  - RHINITIS [None]
  - VIRAL INFECTION [None]
